FAERS Safety Report 5163152-4 (Version None)
Quarter: 2006Q4

REPORT INFORMATION
  Report Type: 
  Country: None (occurrence: None)
  Receive Date: 20061204
  Receipt Date: 20061122
  Transmission Date: 20070319
  Serious: Yes (Life-Threatening)
  Sender: FDA-Public Use
  Company Number: GR-JNJFOC-20061105105

PATIENT
  Age: 67 Year
  Sex: Male

DRUGS (2)
  1. TAVANIC [Suspect]
     Indication: SALMONELLOSIS
     Route: 048
     Dates: start: 20061005, end: 20061009
  2. TAVANIC [Suspect]
     Indication: PYREXIA
     Route: 048
     Dates: start: 20061005, end: 20061009

REACTIONS (4)
  - BONE MARROW FAILURE [None]
  - IMMUNODEFICIENCY [None]
  - STEVENS-JOHNSON SYNDROME [None]
  - TRANSAMINASES INCREASED [None]
